FAERS Safety Report 8926712 (Version 2)
Quarter: 2012Q4

REPORT INFORMATION
  Report Type: Report from Study
  Country: DE (occurrence: DE)
  Receive Date: 20121127
  Receipt Date: 20121204
  Transmission Date: 20130627
  Serious: Yes (Death, Life-Threatening, Hospitalization)
  Sender: FDA-Public Use
  Company Number: DE-TEVA-372169USA

PATIENT
  Sex: Male

DRUGS (10)
  1. TREANDA [Suspect]
     Indication: MULTIPLE MYELOMA
     Dosage: Cyclic
     Route: 042
     Dates: start: 20110609
  2. TREANDA [Suspect]
     Dosage: Cyclic
     Dates: start: 20110804
  3. TREANDA [Suspect]
     Dosage: Cyclic
     Dates: start: 20110901
  4. TREANDA [Suspect]
     Dosage: Cyclic
     Dates: start: 20111006
  5. PREDNISOLONE [Suspect]
     Dosage: Cyclic
     Dates: start: 20110609
  6. PREDNISOLONE [Suspect]
     Dosage: Cyclic
     Dates: start: 20110707
  7. PREDNISOLONE [Suspect]
     Dosage: Cyclic
     Dates: start: 20110804
  8. PREDNISOLONE [Suspect]
     Dosage: Cyclic
     Dates: start: 20110901
  9. PREDNISOLONE [Suspect]
     Dosage: Cyclic
     Dates: start: 20111006
  10. CIPROFLOXACIN [Concomitant]
     Dates: end: 20111009

REACTIONS (2)
  - Pancytopenia [Recovered/Resolved]
  - Death [Fatal]
